FAERS Safety Report 8021986-2 (Version None)
Quarter: 2012Q1

REPORT INFORMATION
  Report Type: 
  Country: None (occurrence: None)
  Receive Date: 20120104
  Receipt Date: 20111223
  Transmission Date: 20120608
  Serious: Yes (Hospitalization)
  Sender: FDA-Public Use
  Company Number: US-ELI_LILLY_AND_COMPANY-US201104007162

PATIENT
  Age: 63 Year
  Sex: Female

DRUGS (2)
  1. FORTEO [Suspect]
     Dosage: 20 UG, QD
     Route: 065
  2. FORTEO [Suspect]
     Indication: OSTEOPOROSIS
     Dosage: 20 UG, QD
     Route: 065

REACTIONS (7)
  - PAIN IN EXTREMITY [None]
  - SLEEP DISORDER DUE TO A GENERAL MEDICAL CONDITION [None]
  - HOSPITALISATION [None]
  - MUSCULOSKELETAL CHEST PAIN [None]
  - ARTHRALGIA [None]
  - BONE PAIN [None]
  - MUSCLE TIGHTNESS [None]
